FAERS Safety Report 7378084-0 (Version None)
Quarter: 2011Q1

REPORT INFORMATION
  Report Type: 
  Country: None (occurrence: None)
  Receive Date: 20110328
  Receipt Date: 20110318
  Transmission Date: 20110831
  Serious: Yes (Hospitalization)
  Sender: FDA-Public Use
  Company Number: NL-MEDIMMUNE-MEDI-0012966

PATIENT
  Sex: Male
  Weight: 4.145 kg

DRUGS (3)
  1. SYNAGIS [Suspect]
     Route: 030
     Dates: start: 20110111, end: 20110307
  2. MICONAZOLE [Concomitant]
  3. ANTIBIOTICS [Concomitant]

REACTIONS (4)
  - INFANTILE SPITTING UP [None]
  - INFECTION [None]
  - PYREXIA [None]
  - PNEUMONIA [None]
